FAERS Safety Report 5031692-4 (Version None)
Quarter: 2006Q2

REPORT INFORMATION
  Report Type: 
  Country: None (occurrence: None)
  Receive Date: 20060621
  Receipt Date: 20060515
  Transmission Date: 20061013
  Serious: Yes (Other)
  Sender: FDA-Public Use
  Company Number: DE-BRISTOL-MYERS SQUIBB COMPANY-13383583

PATIENT
  Age: 35 Year
  Sex: Male
  Weight: 58 kg

DRUGS (4)
  1. SUSTIVA [Suspect]
     Indication: HIV INFECTION
     Dates: start: 20021101, end: 20031127
  2. VIREAD [Concomitant]
     Dates: start: 20020901, end: 20060301
  3. EPIVIR [Concomitant]
     Dates: start: 20020901, end: 20060301
  4. COTRIM [Concomitant]
     Dates: start: 20020901, end: 20040701

REACTIONS (17)
  - BALANCE DISORDER [None]
  - BLINDNESS [None]
  - CYTOMEGALOVIRUS INFECTION [None]
  - DIZZINESS [None]
  - DRUG LEVEL INCREASED [None]
  - GENERAL PHYSICAL HEALTH DETERIORATION [None]
  - KAPOSI'S SARCOMA [None]
  - MUSCLE SPASMS [None]
  - NAUSEA [None]
  - NERVOUS SYSTEM DISORDER [None]
  - NYSTAGMUS [None]
  - OPTIC NERVE DISORDER [None]
  - ORGAN FAILURE [None]
  - POLYNEUROPATHY [None]
  - VASCULITIS [None]
  - VISUAL ACUITY REDUCED [None]
  - VOMITING [None]
